FAERS Safety Report 25059682 (Version 1)
Quarter: 2025Q1

REPORT INFORMATION
  Report Type: Report from Study
  Country: MA (occurrence: MA)
  Receive Date: 20250310
  Receipt Date: 20250310
  Transmission Date: 20250409
  Serious: Yes (Other)
  Sender: ROCHE
  Company Number: MA-ROCHE-10000223271

PATIENT

DRUGS (3)
  1. ATEZOLIZUMAB [Suspect]
     Active Substance: ATEZOLIZUMAB
     Indication: Neoplasm
     Route: 065
  2. BEVACIZUMAB [Suspect]
     Active Substance: BEVACIZUMAB
     Indication: Neoplasm
     Route: 065
  3. PEMBROLIZUMAB [Suspect]
     Active Substance: PEMBROLIZUMAB
     Indication: Neoplasm
     Route: 065

REACTIONS (31)
  - Vomiting [Unknown]
  - Nausea [Unknown]
  - Diarrhoea [Unknown]
  - Constipation [Unknown]
  - Decreased appetite [Unknown]
  - Abdominal pain [Unknown]
  - Mucosal inflammation [Unknown]
  - Hypothyroidism [Unknown]
  - Hyperthyroidism [Unknown]
  - Hypophysitis [Unknown]
  - Pruritus [Unknown]
  - Vitiligo [Unknown]
  - Rash [Unknown]
  - Psoriasis [Unknown]
  - Sarcoidosis [Unknown]
  - Photosensitivity reaction [Unknown]
  - Anaemia [Unknown]
  - Eosinophilia [Unknown]
  - Cytopenia [Unknown]
  - Pneumonitis [Unknown]
  - Rhinitis allergic [Unknown]
  - Neuropathy peripheral [Unknown]
  - Encephalitis [Unknown]
  - Paraesthesia [Unknown]
  - Cerebral haemorrhage [Unknown]
  - Hepatitis [Unknown]
  - Transaminases increased [Unknown]
  - Arthritis [Unknown]
  - Hypoacusis [Unknown]
  - Myalgia [Unknown]
  - Myositis [Unknown]
